FAERS Safety Report 14034203 (Version 1)
Quarter: 2017Q4

REPORT INFORMATION
  Report Type: Spontaneous
  Country: US (occurrence: US)
  Receive Date: 20171003
  Receipt Date: 20171003
  Transmission Date: 20180321
  Serious: No
  Sender: FDA-Public Use
  Company Number: US-TEVA-761745ACC

PATIENT
  Sex: Male

DRUGS (3)
  1. MAOI [Interacting]
     Active Substance: UNSPECIFIED INGREDIENT
     Route: 065
  2. PHENYLALANINE [Suspect]
     Active Substance: PHENYLALANINE
  3. CLONAZEPAM. [Suspect]
     Active Substance: CLONAZEPAM
     Indication: ANXIETY
     Route: 048
     Dates: start: 20170412

REACTIONS (3)
  - Drug interaction [Unknown]
  - Hypertension [Unknown]
  - Drug prescribing error [Unknown]

NARRATIVE: CASE EVENT DATE: 20170412
